FAERS Safety Report 4971153-1 (Version None)
Quarter: 2006Q1

REPORT INFORMATION
  Report Type: 
  Country: None (occurrence: None)
  Receive Date: 20060222
  Receipt Date: 20050412
  Transmission Date: 20060701
  Serious: Yes (Disabling)
  Sender: FDA-Public Use
  Company Number: HQWYE024014APR05

PATIENT
  Age: 38 Year
  Sex: Female

DRUGS (1)
  1. PROTONIX [Suspect]
     Indication: DYSPHAGIA
     Dosage: 40 MG - FREQUENCY UNSPECIFIED

REACTIONS (1)
  - PNEUMONIA [None]
